FAERS Safety Report 24282592 (Version 3)
Quarter: 2024Q3

REPORT INFORMATION
  Report Type: Spontaneous
  Country: MX (occurrence: MX)
  Receive Date: 20240904
  Receipt Date: 20240917
  Transmission Date: 20241016
  Serious: Yes (Other)
  Sender: BAYER
  Company Number: MX-BAYER-2024A126580

PATIENT
  Age: 12 Year
  Sex: Female

DRUGS (1)
  1. LAROTRECTINIB [Suspect]
     Active Substance: LAROTRECTINIB
     Indication: Astrocytoma, low grade
     Dosage: 100 MG, BID
     Route: 048
     Dates: start: 20221105, end: 20240704

REACTIONS (1)
  - Astrocytoma, low grade [Not Recovered/Not Resolved]

NARRATIVE: CASE EVENT DATE: 20240704
